FAERS Safety Report 4406825-0 (Version None)
Quarter: 2004Q3

REPORT INFORMATION
  Report Type: 
  Country: None (occurrence: None)
  Receive Date: 20040723
  Receipt Date: 20040719
  Transmission Date: 20050211
  Serious: Yes (Hospitalization)
  Sender: FDA-Public Use
  Company Number: GB-MERCK-0407GBR00183

PATIENT
  Age: 73 Year
  Sex: Male

DRUGS (6)
  1. BENDROFLUMETHIAZIDE [Concomitant]
     Route: 048
  2. CODEINE PHOSPHATE [Concomitant]
     Route: 048
  3. LACTULOSE [Concomitant]
     Route: 048
  4. VIOXX [Suspect]
     Indication: OSTEOARTHRITIS
     Route: 048
     Dates: start: 20020410, end: 20040625
  5. ROSUVASTATIN CALCIUM [Concomitant]
     Route: 048
  6. SERTRALINE HYDROCHLORIDE [Concomitant]
     Route: 048

REACTIONS (1)
  - HAEMOGLOBIN DECREASED [None]
